FAERS Safety Report 6859800-0 (Version None)
Quarter: 2010Q3

REPORT INFORMATION
  Report Type: 
  Country: None (occurrence: None)
  Receive Date: 20100720
  Receipt Date: 20100708
  Transmission Date: 20110219
  Serious: Yes (Life-Threatening)
  Sender: FDA-Public Use
  Company Number: GB-JNJFOC-20100702770

PATIENT
  Age: 47 Year
  Sex: Male
  Weight: 87 kg

DRUGS (9)
  1. INFLIXIMAB, RECOMBINANT [Suspect]
     Indication: PRODUCT USED FOR UNKNOWN INDICATION
     Route: 042
  2. ASPIRIN [Concomitant]
  3. COAPROVEL [Concomitant]
  4. FOLIC ACID [Concomitant]
  5. HUMALOG [Concomitant]
  6. LANTUS [Concomitant]
  7. LIPITOR [Concomitant]
  8. METFORMIN HCL [Concomitant]
  9. METHOTREXATE [Concomitant]

REACTIONS (6)
  - BLOOD GLUCOSE DECREASED [None]
  - BLOOD PRESSURE DECREASED [None]
  - CHEST DISCOMFORT [None]
  - HYPERSENSITIVITY [None]
  - INFUSION RELATED REACTION [None]
  - LOSS OF CONSCIOUSNESS [None]
